FAERS Safety Report 9694403 (Version 3)
Quarter: 2014Q1

REPORT INFORMATION
  Report Type: Spontaneous
  Country: GB (occurrence: GB)
  Receive Date: 20131118
  Receipt Date: 20140101
  Transmission Date: 20141002
  Serious: Yes (Other)
  Sender: FDA-Public Use
  Company Number: GB-CUBIST PHARMACEUTICAL, INC.-2013CBST001010

PATIENT
  Sex: 0

DRUGS (6)
  1. CUBICIN [Suspect]
     Indication: ENDOCARDITIS STAPHYLOCOCCAL
     Dosage: 6.9 MG/KG, UNK
     Route: 042
     Dates: start: 201008, end: 201009
  2. CUBICIN [Suspect]
     Indication: OFF LABEL USE
     Dosage: 500 MG, UNK
     Route: 065
     Dates: start: 201008, end: 201009
  3. CUBICIN [Suspect]
     Dosage: 9.7 MG/KG, UNK
     Route: 065
     Dates: start: 201010, end: 201106
  4. CUBICIN [Suspect]
     Dosage: 700 MG, UNK
     Route: 065
     Dates: start: 201010, end: 201106
  5. RIFAMPICIN [Suspect]
     Indication: ENDOCARDITIS STAPHYLOCOCCAL
     Dosage: UNK, UNK, UNK
     Route: 065
     Dates: start: 201002, end: 201109
  6. VANCOMYCIN [Suspect]
     Indication: ENDOCARDITIS STAPHYLOCOCCAL
     Dosage: 4000 MG, UNK
     Route: 042
     Dates: start: 201002, end: 201010

REACTIONS (5)
  - Cardiac valve vegetation [Recovering/Resolving]
  - Embolism [Recovering/Resolving]
  - Endocarditis staphylococcal [Recovered/Resolved]
  - Staphylococcal bacteraemia [Recovered/Resolved]
  - Drug ineffective for unapproved indication [Unknown]
